FAERS Safety Report 9253274 (Version 3)
Quarter: 2013Q2

REPORT INFORMATION
  Report Type: Spontaneous
  Country: US (occurrence: US)
  Receive Date: 20130424
  Receipt Date: 20130522
  Transmission Date: 20140414
  Serious: Yes (Hospitalization)
  Sender: FDA-Public Use
  Company Number: US-GILEAD-2013-0074022

PATIENT
  Sex: Male

DRUGS (3)
  1. LETAIRIS [Suspect]
     Indication: PULMONARY HYPERTENSION
     Dosage: 5 MG, QD
     Route: 048
     Dates: start: 20130417
  2. LETAIRIS [Suspect]
     Indication: EISENMENGER^S SYNDROME
  3. EPOPROSTENOL [Concomitant]

REACTIONS (3)
  - Device damage [Unknown]
  - Device leakage [Unknown]
  - Dyspnoea [Unknown]
